FAERS Safety Report 4423560-3 (Version None)
Quarter: 2004Q3

REPORT INFORMATION
  Report Type: 
  Country: None (occurrence: None)
  Receive Date: 20040805
  Receipt Date: 20040205
  Transmission Date: 20050211
  Serious: Yes (Disabling)
  Sender: FDA-Public Use
  Company Number: JP-JNJFOC-20040707515

PATIENT
  Age: 82 Year
  Sex: Male

DRUGS (11)
  1. OXYBUTYNIN HYDROCHLORIDE (OXYBUTYNIN HYDROCHLORIDE) TABLETS [Suspect]
     Indication: URINARY INCONTINENCE
     Dosage: 2 TABLETS ORAL DAILY
     Route: 048
     Dates: start: 20030728, end: 20040205
  2. MOBIC [Concomitant]
  3. MUCOSTA (RABAMIPIDE) [Concomitant]
  4. DEPAKENE [Concomitant]
  5. BUFFERIN [Concomitant]
  6. HARNAL (TAMSULOSIN HYDROCHLORIDE) [Concomitant]
  7. BUP-4 (PROPIVERINE HYDROCHLORIDE) [Concomitant]
  8. ARICEPT [Concomitant]
  9. DIOVAN [Concomitant]
  10. SEDIEL (TANDOSPIRONE CITRATE) [Concomitant]
  11. CEROCRAL (IFENPRODIL TARTRATE) [Concomitant]

REACTIONS (3)
  - BLINDNESS [None]
  - CATARACT [None]
  - GLAUCOMA [None]
